FAERS Safety Report 17559194 (Version 1)
Quarter: 2020Q1

REPORT INFORMATION
  Report Type: Spontaneous
  Country: FR (occurrence: FR)
  Receive Date: 20200319
  Receipt Date: 20200319
  Transmission Date: 20200409
  Serious: No
  Sender: FDA-Public Use
  Company Number: FR-ALKEM LABORATORIES LIMITED-FR-ALKEM-2019-10658

PATIENT
  Age: 28 Year
  Sex: Male

DRUGS (1)
  1. ARIPIPRAZOLE. [Suspect]
     Active Substance: ARIPIPRAZOLE
     Indication: SCHIZOID PERSONALITY DISORDER
     Dosage: 15 MILLIGRAM
     Route: 065

REACTIONS (3)
  - Gambling disorder [Recovered/Resolved]
  - Homosexuality [Unknown]
  - Hypersexuality [Recovered/Resolved]
